FAERS Safety Report 5038677-2 (Version None)
Quarter: 2006Q2

REPORT INFORMATION
  Report Type: 
  Country: None (occurrence: None)
  Receive Date: 20060627
  Receipt Date: 20060627
  Transmission Date: 20061013
  Serious: Yes (Disabling)
  Sender: FDA-Public Use
  Company Number: None

PATIENT
  Age: 57 Year
  Sex: Male
  Weight: 64.8644 kg

DRUGS (1)
  1. PENICILLIN G [Suspect]
     Indication: STAPHYLOCOCCAL BACTERAEMIA
     Dosage: 24 MILLION UNITS/DAY 42 ML EVERY HOUR IV DRIP
     Route: 041
     Dates: start: 20060616, end: 20060621

REACTIONS (1)
  - RENAL FAILURE ACUTE [None]
